FAERS Safety Report 9063164 (Version 1)
Quarter: 2013Q1

REPORT INFORMATION
  Report Type: Report from Study
  Country: PR (occurrence: PR)
  Receive Date: 20130129
  Receipt Date: 20130129
  Transmission Date: 20140127
  Serious: No
  Sender: FDA-Public Use
  Company Number: PR-ABBOTT-12P-131-0891946-00

PATIENT
  Sex: Female

DRUGS (2)
  1. HUMIRA 40 MG/0.8 ML PEN [Suspect]
     Indication: PRODUCT USED FOR UNKNOWN INDICATION
     Route: 058
     Dates: end: 20111227
  2. HUMIRA 40 MG/0.8 ML PEN [Suspect]
     Route: 058
     Dates: start: 20120110

REACTIONS (6)
  - Fall [Unknown]
  - Asthma [Unknown]
  - Skin discolouration [Unknown]
  - Oedema peripheral [Unknown]
  - Exostosis [Unknown]
  - Dysstasia [Unknown]
